FAERS Safety Report 4381774-5 (Version None)
Quarter: 2004Q2

REPORT INFORMATION
  Report Type: 
  Country: None (occurrence: None)
  Receive Date: 20040615
  Receipt Date: 20040604
  Transmission Date: 20050107
  Serious: Yes (Life-Threatening)
  Sender: FDA-Public Use
  Company Number: BASF-04-006

PATIENT
  Sex: Male

DRUGS (1)
  1. SILVER SULFADIAZINE 1% CREAM [Suspect]
     Indication: WOUND
     Dosage: THIN LAYER, 2 X PER 1 WK, TOPICAL
     Route: 061
     Dates: start: 20030101, end: 20040101

REACTIONS (5)
  - ABNORMAL FAECES [None]
  - APPLICATION SITE DISCOLOURATION [None]
  - ARTHROPATHY [None]
  - HEADACHE [None]
  - MENTAL DISORDER [None]
